FAERS Safety Report 10944188 (Version 3)
Quarter: 2015Q4

REPORT INFORMATION
  Report Type: Report from Study
  Country: US (occurrence: US)
  Receive Date: 20150323
  Receipt Date: 20151016
  Transmission Date: 20160304
  Serious: No
  Sender: FDA-Public Use
  Company Number: US-AMGEN-USASP2015026406

PATIENT
  Age: 61 Year
  Sex: Male

DRUGS (1)
  1. ENBREL [Suspect]
     Active Substance: ETANERCEPT
     Indication: RHEUMATOID ARTHRITIS
     Dosage: 50 MG, QWK
     Route: 065
     Dates: start: 201005

REACTIONS (4)
  - Back disorder [Not Recovered/Not Resolved]
  - Surgery [Recovered/Resolved]
  - Skin disorder [Unknown]
  - Knee operation [Unknown]

NARRATIVE: CASE EVENT DATE: 201504
